FAERS Safety Report 11486587 (Version 2)
Quarter: 2015Q4

REPORT INFORMATION
  Report Type: Spontaneous
  Country: US (occurrence: US)
  Receive Date: 20150910
  Receipt Date: 20151013
  Transmission Date: 20160304
  Serious: No
  Sender: FDA-Public Use
  Company Number: US-PFIZER INC-2015288854

PATIENT
  Age: 73 Year
  Sex: Female
  Weight: 61 kg

DRUGS (5)
  1. ALEVE [Concomitant]
     Active Substance: NAPROXEN SODIUM
     Indication: ARTHRITIS
  2. BABY ASPIRIN [Concomitant]
     Active Substance: ASPIRIN
     Dosage: 1 DF, 1X/DAY
  3. RANITIDINE [Concomitant]
     Active Substance: RANITIDINE\RANITIDINE HYDROCHLORIDE
     Indication: GASTRITIS EROSIVE
     Dosage: 1 DF, UNK
  4. LYRICA [Suspect]
     Active Substance: PREGABALIN
     Indication: LUMBAR SPINAL STENOSIS
     Dosage: 75 MG, 1X/DAY (75MG, 1 CAPSULE A DAY, AT NIGHT)
     Route: 048
     Dates: start: 201507
  5. ALEVE [Concomitant]
     Active Substance: NAPROXEN SODIUM
     Indication: PAIN

REACTIONS (1)
  - Dizziness [Not Recovered/Not Resolved]

NARRATIVE: CASE EVENT DATE: 20150731
